FAERS Safety Report 13160763 (Version 1)
Quarter: 2017Q1

REPORT INFORMATION
  Report Type: Spontaneous
  Country: US (occurrence: US)
  Receive Date: 20170129
  Receipt Date: 20170129
  Transmission Date: 20170428
  Serious: Yes (Death)
  Sender: FDA-Public Use
  Company Number: US-ROCHE-1886253

PATIENT
  Age: 59 Year
  Sex: Male

DRUGS (1)
  1. ZELBORAF [Suspect]
     Active Substance: VEMURAFENIB
     Indication: METASTASIS
     Route: 048
     Dates: start: 201610, end: 201612

REACTIONS (1)
  - Death [Fatal]

NARRATIVE: CASE EVENT DATE: 20170120
